FAERS Safety Report 4829065-X (Version None)
Quarter: 2005Q4

REPORT INFORMATION
  Report Type: 
  Country: None (occurrence: None)
  Receive Date: 20051031
  Receipt Date: 20050112
  Transmission Date: 20060501
  Serious: Yes (Hospitalization, Other)
  Sender: FDA-Public Use
  Company Number: 200510323US

PATIENT
  Age: 43 Year
  Sex: Male

DRUGS (15)
  1. ARAVA [Suspect]
     Indication: RHEUMATOID ARTHRITIS
     Dosage: 100 MG QD
     Dates: start: 20031201, end: 20031201
  2. ARAVA [Suspect]
     Indication: RHEUMATOID ARTHRITIS
     Dosage: 20 MG QD
     Dates: start: 20031201, end: 20040201
  3. WELLBUTRIN [Concomitant]
  4. NORVASC [Concomitant]
  5. PARACETAMOL (TYLENOL) [Concomitant]
  6. PETHIDINE HYDROCHLORIDE (DEMEROL) [Concomitant]
  7. BENAZEPRIL HCL [Concomitant]
  8. LOSARTAN [Concomitant]
  9. HYDROCHLOROTHIAZIDE [Concomitant]
  10. PANTOPRAZOLE SODIUM [Concomitant]
  11. TEMAZEPAM (RESTORIL) [Concomitant]
  12. XOPENEX [Concomitant]
  13. HYDROCHLOROTHIAZIDE, LOSARTAN POTASSIUM (HYZAAR) [Concomitant]
  14. CELEBREX [Concomitant]
  15. PAXIL [Concomitant]

REACTIONS (10)
  - ALVEOLAR PROTEINOSIS [None]
  - ASTHENIA [None]
  - CHEST PAIN [None]
  - COUGH [None]
  - DIARRHOEA [None]
  - DYSPNOEA [None]
  - INTERSTITIAL LUNG DISEASE [None]
  - PNEUMONITIS [None]
  - PYREXIA [None]
  - WEIGHT DECREASED [None]
